FAERS Safety Report 7710350-9 (Version None)
Quarter: 2011Q3

REPORT INFORMATION
  Report Type: 
  Country: None (occurrence: None)
  Receive Date: 20110825
  Receipt Date: 20110718
  Transmission Date: 20111222
  Serious: No
  Sender: FDA-Public Use
  Company Number: US-MYLANLABS-2011S1011593

PATIENT
  Age: 64 Year
  Sex: Male
  Weight: 71.22 kg

DRUGS (7)
  1. PANTOPRAZOLE [Concomitant]
  2. IRBESARTAN [Concomitant]
     Indication: BLOOD CHOLESTEROL
     Dosage: 1/2 TAB
  3. AMLODIPINE [Concomitant]
     Indication: BLOOD PRESSURE INCREASED
  4. VALIUM [Concomitant]
  5. ZOCOR [Concomitant]
     Indication: BLOOD CHOLESTEROL
     Dosage: 1/2 TAB
  6. LANSOPRAZOLE [Suspect]
     Indication: GASTROOESOPHAGEAL REFLUX DISEASE
     Dates: start: 20110527, end: 20110528
  7. CITALOPRAM HYDROBROMIDE [Concomitant]
     Indication: DEPRESSION

REACTIONS (4)
  - DRUG EFFECT DECREASED [None]
  - URTICARIA [None]
  - PRURITUS [None]
  - GASTROOESOPHAGEAL REFLUX DISEASE [None]
